FAERS Safety Report 4683200-5 (Version None)
Quarter: 2005Q2

REPORT INFORMATION
  Report Type: 
  Country: None (occurrence: None)
  Receive Date: 20050602
  Receipt Date: 20050304
  Transmission Date: 20051028
  Serious: No
  Sender: FDA-Public Use
  Company Number: USA050289635

PATIENT
  Age: 44 Year
  Sex: Female
  Weight: 64 kg

DRUGS (7)
  1. CYMBALTA [Suspect]
     Indication: ANXIETY
     Dosage: 90 MG
     Dates: start: 20041008
  2. CYMBALTA [Suspect]
     Indication: DEPRESSION
     Dosage: 90 MG
     Dates: start: 20041008
  3. CYMBALTA [Suspect]
     Indication: FIBROMYALGIA
     Dosage: 90 MG
     Dates: start: 20041008
  4. WELLBUTRIN [Concomitant]
  5. AMTRIPTYLINE [Concomitant]
  6. AMBIEN [Concomitant]
  7. ULTRAM [Concomitant]

REACTIONS (2)
  - DYSMENORRHOEA [None]
  - MENORRHAGIA [None]
